FAERS Safety Report 19559638 (Version 1)
Quarter: 2021Q3

REPORT INFORMATION
  Report Type: Spontaneous
  Country: US (occurrence: US)
  Receive Date: 20210715
  Receipt Date: 20210715
  Transmission Date: 20211014
  Serious: No
  Sender: FDA-Public Use
  Company Number: None

PATIENT
  Age: 62 Year
  Sex: Female
  Weight: 58.7 kg

DRUGS (17)
  1. EZETIMIBE. [Concomitant]
     Active Substance: EZETIMIBE
  2. GABAPENTIN. [Concomitant]
     Active Substance: GABAPENTIN
  3. CALCIUM [Concomitant]
     Active Substance: CALCIUM
  4. LEVOTHYROXINE SODIUM. [Concomitant]
     Active Substance: LEVOTHYROXINE SODIUM
  5. DICLOFENAC [Concomitant]
     Active Substance: DICLOFENAC
  6. TRAMADOL HCL [Concomitant]
     Active Substance: TRAMADOL HYDROCHLORIDE
  7. VASCEPA [Concomitant]
     Active Substance: ICOSAPENT ETHYL
  8. IBRANCE [Suspect]
     Active Substance: PALBOCICLIB
     Indication: BREAST CANCER
     Route: 048
     Dates: start: 20210105
  9. ATENOLOL. [Concomitant]
     Active Substance: ATENOLOL
  10. LORATADINE. [Concomitant]
     Active Substance: LORATADINE
  11. ROSUVASTATIN CALCIUM. [Concomitant]
     Active Substance: ROSUVASTATIN CALCIUM
  12. MULTI VITAMIN [Concomitant]
     Active Substance: VITAMINS
  13. TIZANIDINE HCL [Concomitant]
     Active Substance: TIZANIDINE HYDROCHLORIDE
  14. OXYCODONE?ACETAMINOPHEN [Concomitant]
     Active Substance: ACETAMINOPHEN\OXYCODONE HYDROCHLORIDE
  15. TYLENOL [Concomitant]
     Active Substance: ACETAMINOPHEN
  16. CLOPIDOGREL [Concomitant]
     Active Substance: CLOPIDOGREL BISULFATE
  17. ZOMETA [Concomitant]
     Active Substance: ZOLEDRONIC ACID

REACTIONS (2)
  - Electrolyte imbalance [None]
  - Renal disorder [None]

NARRATIVE: CASE EVENT DATE: 20210715
